FAERS Safety Report 6170039-7 (Version None)
Quarter: 2009Q2

REPORT INFORMATION
  Report Type: 
  Country: None (occurrence: None)
  Receive Date: 20090424
  Receipt Date: 20081222
  Transmission Date: 20091009
  Serious: No
  Sender: FDA-Public Use
  Company Number: ALL1-2008-03616

PATIENT
  Age: 50 Year
  Sex: Female
  Weight: 61.7 kg

DRUGS (3)
  1. VYVANSE [Suspect]
     Indication: ATTENTION DEFICIT/HYPERACTIVITY DISORDER
     Dosage: 50 MG, 1X/DAY QD, ORAL; 70 MG, 1X/DAY: QD, ORAL
     Route: 048
     Dates: start: 20081008, end: 20081216
  2. VYVANSE [Suspect]
     Indication: ATTENTION DEFICIT/HYPERACTIVITY DISORDER
     Dosage: 50 MG, 1X/DAY QD, ORAL; 70 MG, 1X/DAY: QD, ORAL
     Route: 048
     Dates: start: 20081217
  3. SEROQUEL [Concomitant]

REACTIONS (2)
  - DRUG EFFECT DECREASED [None]
  - SOMNOLENCE [None]
